FAERS Safety Report 24875224 (Version 1)
Quarter: 2025Q1

REPORT INFORMATION
  Report Type: Spontaneous
  Country: US (occurrence: None)
  Receive Date: 20250122
  Receipt Date: 20250122
  Transmission Date: 20250409
  Serious: Yes (Other)
  Sender: FDA-CTU
  Company Number: None

PATIENT
  Age: 5 Year
  Sex: Male

DRUGS (1)
  1. MIRALAX [Suspect]
     Active Substance: POLYETHYLENE GLYCOL 3350

REACTIONS (8)
  - Product prescribing issue [None]
  - Abnormal behaviour [None]
  - Emotional distress [None]
  - Suicidal ideation [None]
  - Tic [None]
  - Dysphemia [None]
  - Attention deficit hyperactivity disorder [None]
  - Autism spectrum disorder [None]

NARRATIVE: CASE EVENT DATE: 20250118
